FAERS Safety Report 4560603-0 (Version None)
Quarter: 2005Q1

REPORT INFORMATION
  Report Type: 
  Country: None (occurrence: None)
  Receive Date: 20050125
  Receipt Date: 20041215
  Transmission Date: 20050727
  Serious: Yes (Hospitalization)
  Sender: FDA-Public Use
  Company Number: AU-MERCK-0412AUS00142

PATIENT
  Age: 79 Year
  Sex: Male

DRUGS (3)
  1. VIOXX [Suspect]
     Route: 048
     Dates: start: 20040101, end: 20040601
  2. DIGOXIN [Concomitant]
     Route: 065
  3. ASPIRIN [Concomitant]
     Route: 065

REACTIONS (1)
  - CEREBROVASCULAR ACCIDENT [None]
